FAERS Safety Report 4677062-X (Version None)
Quarter: 2005Q2

REPORT INFORMATION
  Report Type: 
  Country: None (occurrence: None)
  Receive Date: 20050525
  Receipt Date: 20050223
  Transmission Date: 20051028
  Serious: No
  Sender: FDA-Public Use
  Company Number: SU-2005-003212

PATIENT
  Age: 86 Year
  Sex: Female
  Weight: 71.6683 kg

DRUGS (5)
  1. BENICAR [Suspect]
     Indication: HYPERTENSION
     Dosage: 40 MG QD PO
     Route: 048
     Dates: start: 20050124
  2. NORVASC [Suspect]
     Indication: HYPERTENSION
     Dosage: 5 MG QD PO
     Route: 048
     Dates: start: 20050202
  3. SYNTHROID [Concomitant]
  4. FOLTX [Concomitant]
  5. SINGULAIR [Concomitant]

REACTIONS (6)
  - CONSTIPATION [None]
  - DIZZINESS [None]
  - FAECALOMA [None]
  - NAUSEA [None]
  - POLLAKIURIA [None]
  - VOMITING [None]
